FAERS Safety Report 13039930 (Version 3)
Quarter: 2017Q1

REPORT INFORMATION
  Report Type: Spontaneous
  Country: GT (occurrence: GT)
  Receive Date: 20161219
  Receipt Date: 20170330
  Transmission Date: 20170428
  Serious: Yes (Hospitalization, Other)
  Sender: FDA-Public Use
  Company Number: GT-HQ SPECIALTY-GT-2016INT000995

PATIENT
  Age: 66 Year
  Sex: Female

DRUGS (4)
  1. FENTANYL. [Suspect]
     Active Substance: FENTANYL
     Indication: SEDATION
     Dosage: UNK
  2. HALOPERIDOL                        /00027402/ [Suspect]
     Active Substance: HALOPERIDOL
     Indication: DELIRIUM
     Dosage: UNK
     Route: 042
  3. FENTANYL. [Suspect]
     Active Substance: FENTANYL
     Indication: DELIRIUM
  4. DEXMEDETOMIDINE HYDROCHLORIDE. [Suspect]
     Active Substance: DEXMEDETOMIDINE HYDROCHLORIDE
     Indication: DELIRIUM
     Dosage: UNK

REACTIONS (3)
  - Tachycardia [Unknown]
  - Ventricular extrasystoles [Unknown]
  - Autonomic nervous system imbalance [Recovering/Resolving]
